FAERS Safety Report 25440663 (Version 2)
Quarter: 2025Q2

REPORT INFORMATION
  Report Type: Report from Study
  Country: CA (occurrence: CA)
  Receive Date: 20250616
  Receipt Date: 20250627
  Transmission Date: 20250716
  Serious: Yes (Death, Disabling, Other)
  Sender: DAIICHI
  Company Number: CA-DSJP-DS-2025-144617-CA

PATIENT
  Age: 51 Year
  Sex: Male
  Weight: 38.4 kg

DRUGS (1)
  1. DATOPOTAMAB DERUXTECAN [Suspect]
     Active Substance: DATOPOTAMAB DERUXTECAN
     Indication: Non-small cell lung cancer metastatic
     Dosage: 230 MG, ONCE EVERY 3 WK
     Route: 042
     Dates: start: 20241210, end: 20250429

REACTIONS (5)
  - Metastasis [Fatal]
  - Fatigue [Not Recovered/Not Resolved]
  - Asthenia [Not Recovered/Not Resolved]
  - Abdominal distension [Unknown]
  - Abdominal distension [Unknown]

NARRATIVE: CASE EVENT DATE: 20250528
